FAERS Safety Report 17963278 (Version 1)
Quarter: 2020Q2

REPORT INFORMATION
  Report Type: Other
  Country: NP (occurrence: NP)
  Receive Date: 20200630
  Receipt Date: 20200630
  Transmission Date: 20200714
  Serious: Yes (Other)
  Sender: FDA-Public Use
  Company Number: NP-KNIGHT THERAPEUTICS (USA) INC.-2086867

PATIENT
  Age: 15 Year
  Sex: Female
  Weight: 43 kg

DRUGS (1)
  1. IMPAVIDO [Suspect]
     Active Substance: MILTEFOSINE
     Indication: CUTANEOUS LEISHMANIASIS
     Route: 048
     Dates: start: 20190714, end: 20190814

REACTIONS (1)
  - Keratitis [Recovered/Resolved]
